FAERS Safety Report 5521252-0 (Version None)
Quarter: 2007Q4

REPORT INFORMATION
  Report Type: 
  Country: None (occurrence: None)
  Receive Date: 20071119
  Receipt Date: 20070814
  Transmission Date: 20080405
  Serious: Yes (Hospitalization, Other)
  Sender: FDA-Public Use
  Company Number: US-ASTRAZENECA-2007UW02356

PATIENT
  Age: 18635 Day
  Sex: Male
  Weight: 106.8 kg

DRUGS (3)
  1. SEROQUEL [Suspect]
     Indication: POST-TRAUMATIC STRESS DISORDER
     Dosage: 100 MG TO 300 MG
     Route: 048
     Dates: start: 20030317
  2. SEROQUEL [Suspect]
     Indication: DEPRESSION
     Dosage: 100 MG TO 300 MG
     Route: 048
     Dates: start: 20030317
  3. SEROQUEL [Suspect]
     Indication: NIGHTMARE
     Dosage: 100 MG TO 300 MG
     Route: 048
     Dates: start: 20030317

REACTIONS (5)
  - DELIRIUM [None]
  - KNEE ARTHROPLASTY [None]
  - OVERDOSE [None]
  - TYPE 2 DIABETES MELLITUS [None]
  - WEIGHT INCREASED [None]
